FAERS Safety Report 6721993-3 (Version None)
Quarter: 2010Q2

REPORT INFORMATION
  Report Type: 
  Country: None (occurrence: None)
  Receive Date: 20100512
  Receipt Date: 20100510
  Transmission Date: 20101027
  Serious: Yes (Hospitalization)
  Sender: FDA-Public Use
  Company Number: B0651956A

PATIENT
  Sex: Female

DRUGS (8)
  1. AUGMENTIN '125' [Suspect]
     Indication: TRACHEITIS
     Dosage: 1G TWICE PER DAY
     Route: 048
     Dates: start: 20100412, end: 20100419
  2. METHOTREXATE [Suspect]
     Indication: RHEUMATOID ARTHRITIS
     Dosage: 10MG WEEKLY
     Route: 042
     Dates: start: 20060101, end: 20100426
  3. ROVAMYCINE [Concomitant]
     Indication: TRACHEITIS
     Dosage: 1.5IU3 TWICE PER DAY
     Route: 048
     Dates: start: 20100412, end: 20100419
  4. CORTANCYL [Concomitant]
     Indication: RHEUMATOID ARTHRITIS
     Dosage: 6MG PER DAY
     Route: 065
     Dates: start: 20000101
  5. IDEOS [Concomitant]
     Indication: DRUG USE FOR UNKNOWN INDICATION
     Dosage: 200MG TWICE PER DAY
     Route: 065
     Dates: start: 20000101
  6. KENZEN [Concomitant]
     Dosage: 8MG PER DAY
     Route: 065
  7. ENDOTELON [Concomitant]
     Indication: DRUG USE FOR UNKNOWN INDICATION
     Dosage: 150MG PER DAY
     Route: 065
  8. MEBEVERINE [Concomitant]
     Indication: DRUG USE FOR UNKNOWN INDICATION
     Dosage: 200MG TWICE PER DAY
     Route: 065
     Dates: start: 20080101

REACTIONS (9)
  - ABDOMINAL PAIN LOWER [None]
  - CHROMATURIA [None]
  - CYTOLYTIC HEPATITIS [None]
  - DRUG INTERACTION [None]
  - FAECES DISCOLOURED [None]
  - HAEMOLYSIS [None]
  - JAUNDICE [None]
  - OVERDOSE [None]
  - PRURITUS GENERALISED [None]
